FAERS Safety Report 11228461 (Version 1)
Quarter: 2015Q2

REPORT INFORMATION
  Report Type: Spontaneous
  Country: None (occurrence: GB)
  Receive Date: 20150630
  Receipt Date: 20150630
  Transmission Date: 20150821
  Serious: Yes (Other)
  Sender: FDA-Public Use
  Company Number: GB-MEDAC PHARMA, INC.-1040263

PATIENT
  Sex: Female

DRUGS (3)
  1. HUMIRA [Suspect]
     Active Substance: ADALIMUMAB
     Route: 065
  2. IBUPROFEN. [Concomitant]
     Active Substance: IBUPROFEN
  3. METHOTREXATE [Suspect]
     Active Substance: METHOTREXATE
     Route: 065

REACTIONS (4)
  - Skin disorder [Recovered/Resolved]
  - Aphasia [Unknown]
  - Arthritis [Unknown]
  - Multiple sclerosis [Unknown]
